FAERS Safety Report 5261897-9 (Version None)
Quarter: 2007Q1

REPORT INFORMATION
  Report Type: 
  Country: None (occurrence: None)
  Receive Date: 20070310
  Receipt Date: 20070228
  Transmission Date: 20070707
  Serious: Yes (Hospitalization, Other)
  Sender: FDA-Public Use
  Company Number: 2006UW08495

PATIENT
  Sex: Female
  Weight: 137.3 kg

DRUGS (3)
  1. SEROQUEL [Suspect]
     Indication: DEPRESSION
     Route: 048
     Dates: end: 20060101
  2. DEPAKOTE [Concomitant]
     Dates: start: 20050101
  3. TRAZODONE HCL [Concomitant]
     Dates: start: 20060101

REACTIONS (5)
  - ARRHYTHMIA [None]
  - DIABETES MELLITUS [None]
  - DIABETIC COMA [None]
  - MYOCARDIAL INFARCTION [None]
  - PALPITATIONS [None]
